FAERS Safety Report 10217746 (Version 2)
Quarter: 2014Q3

REPORT INFORMATION
  Report Type: Not Available
  Country: CO (occurrence: CO)
  Receive Date: 20140604
  Receipt Date: 20140808
  Transmission Date: 20150326
  Serious: Yes (Hospitalization)
  Sender: FDA-Public Use
  Company Number: CO-ONYX-2014-1219

PATIENT
  Sex: Female
  Weight: 66 kg

DRUGS (1)
  1. KYPROLIS [Suspect]
     Active Substance: CARFILZOMIB
     Indication: PLASMA CELL MYELOMA
     Route: 042

REACTIONS (3)
  - Convulsion [Unknown]
  - Ischaemic stroke [Unknown]
  - Hypertensive crisis [Unknown]
